FAERS Safety Report 13401882 (Version 1)
Quarter: 2017Q2

REPORT INFORMATION
  Report Type: Spontaneous
  Country: IT (occurrence: IT)
  Receive Date: 20170404
  Receipt Date: 20170404
  Transmission Date: 20170830
  Serious: Yes (Hospitalization)
  Sender: FDA-Public Use
  Company Number: IT-MYLANLABS-2017M1020630

PATIENT

DRUGS (7)
  1. FLUCONAZOLE. [Suspect]
     Active Substance: FLUCONAZOLE
     Indication: MENINGOENCEPHALITIS HERPETIC
  2. FLUCONAZOLE. [Suspect]
     Active Substance: FLUCONAZOLE
     Indication: OESOPHAGEAL CANDIDIASIS
     Dosage: 3 MG/KG DAILY
     Route: 048
     Dates: start: 20170310, end: 20170323
  3. ACYCLOVIR. [Suspect]
     Active Substance: ACYCLOVIR
     Dosage: UNK
     Route: 048
     Dates: end: 20170322
  4. CEFTRIAXONE. [Suspect]
     Active Substance: CEFTRIAXONE
     Indication: MENINGOENCEPHALITIS HERPETIC
     Dosage: 2 G, QD
     Route: 042
     Dates: start: 20170302, end: 20170313
  5. OMEPRAZOLE. [Concomitant]
     Active Substance: OMEPRAZOLE
     Indication: PROPHYLAXIS
     Dosage: 20 MG
     Route: 042
     Dates: start: 20170309, end: 20170317
  6. IBUPROFEN. [Concomitant]
     Active Substance: IBUPROFEN
     Indication: PYREXIA
     Dosage: 900 MG, UNK
     Route: 048
     Dates: start: 20170305, end: 20170308
  7. ACYCLOVIR. [Suspect]
     Active Substance: ACYCLOVIR
     Indication: MENINGOENCEPHALITIS HERPETIC
     Dosage: 870 MG, QD
     Route: 042
     Dates: start: 20170302, end: 20170317

REACTIONS (2)
  - Cholelithiasis [Unknown]
  - Hypercholesterolaemia [Unknown]

NARRATIVE: CASE EVENT DATE: 20170320
